FAERS Safety Report 16596844 (Version 1)
Quarter: 2019Q3

REPORT INFORMATION
  Report Type: Spontaneous
  Country: US (occurrence: US)
  Receive Date: 20190719
  Receipt Date: 20190719
  Transmission Date: 20191004
  Serious: No
  Sender: FDA-Public Use
  Company Number: US-JNJFOC-20190726511

PATIENT
  Age: 30 Year
  Sex: Female
  Weight: 49.94 kg

DRUGS (1)
  1. WOMENS ROGAINE [Suspect]
     Active Substance: MINOXIDIL
     Indication: PRODUCT USED FOR UNKNOWN INDICATION
     Dosage: A SMALL DROP JUST ONCE
     Route: 061
     Dates: start: 20190201

REACTIONS (3)
  - Application site pain [Recovered/Resolved]
  - Product use in unapproved indication [Recovered/Resolved]
  - Application site pruritus [Recovered/Resolved]

NARRATIVE: CASE EVENT DATE: 20190201
